FAERS Safety Report 8544390-7 (Version None)
Quarter: 2012Q3

REPORT INFORMATION
  Report Type: 
  Country: None (occurrence: None)
  Receive Date: 20120727
  Receipt Date: 20120717
  Transmission Date: 20120928
  Serious: Yes (Hospitalization)
  Sender: FDA-Public Use
  Company Number: US-BAYER-2012-041943

PATIENT
  Age: 41 Year
  Sex: Female
  Weight: 58.957 kg

DRUGS (5)
  1. SINGULAIR [Concomitant]
  2. CLARITIN [Concomitant]
  3. PREVACID [Concomitant]
     Dosage: 30 MG, UNK
  4. AUGMENTIN '500' [Concomitant]
     Dosage: UNK
     Dates: start: 20070922
  5. YAZ [Suspect]
     Dosage: UNK
     Dates: start: 20070301, end: 20071001

REACTIONS (2)
  - INJURY [None]
  - COLITIS ISCHAEMIC [None]
